FAERS Safety Report 10737327 (Version 1)
Quarter: 2015Q1

REPORT INFORMATION
  Report Type: Spontaneous
  Country: FR (occurrence: None)
  Receive Date: 20150122
  Receipt Date: 20150122
  Transmission Date: 20150721
  Serious: Yes (Hospitalization)
  Sender: FDA-Public Use
  Company Number: FR-20150011

PATIENT
  Age: 30 Year
  Sex: Female

DRUGS (2)
  1. DOTAREM [Suspect]
     Active Substance: GADOTERATE MEGLUMINE
     Indication: NUCLEAR MAGNETIC RESONANCE IMAGING
     Dosage: 10 ML (10 ML, 1 IN 1 D) UNKNOWN ROUTE OF ADMINISITRATION
     Dates: start: 20141025, end: 20141025
  2. ANDROCUR (CYPROTERONE ACETATE) [Concomitant]

REACTIONS (6)
  - Hypokalaemia [None]
  - Arrhythmia [None]
  - Myoclonus [None]
  - Anxiety [None]
  - Rash [None]
  - Capillaritis [None]

NARRATIVE: CASE EVENT DATE: 20141028
